FAERS Safety Report 6212375-1 (Version None)
Quarter: 2009Q2

REPORT INFORMATION
  Report Type: 
  Country: None (occurrence: None)
  Receive Date: 20090603
  Receipt Date: 20090519
  Transmission Date: 20091009
  Serious: Yes (Other)
  Sender: FDA-Public Use
  Company Number: GB-RANBAXY-2009RR-24353

PATIENT
  Sex: Male

DRUGS (2)
  1. PARACETAMOL [Suspect]
  2. TEGRETOL [Suspect]
     Indication: BIPOLAR DISORDER

REACTIONS (1)
  - OVERDOSE [None]
